FAERS Safety Report 24274830 (Version 1)
Quarter: 2024Q3

REPORT INFORMATION
  Report Type: Spontaneous
  Country: AU (occurrence: AU)
  Receive Date: 20240902
  Receipt Date: 20240902
  Transmission Date: 20241016
  Serious: Yes (Hospitalization)
  Sender: ASTELLAS
  Company Number: AU-ASTELLAS-2024-AER-001411

PATIENT
  Age: 63 Year
  Sex: Female

DRUGS (8)
  1. MIRABEGRON [Suspect]
     Active Substance: MIRABEGRON
     Indication: Urge incontinence
     Dosage: ALTERNATE BETWEEN 25 MG ONCE IN THE MORNING AND 50 MG ONCE IN THE MORNING
     Route: 050
  2. MIRABEGRON [Suspect]
     Active Substance: MIRABEGRON
     Indication: Hypertonic bladder
  3. MIRABEGRON [Suspect]
     Active Substance: MIRABEGRON
     Indication: Urge incontinence
     Dosage: ALTERNATE BETWEEN 25 MG ONCE IN THE MORNING AND 50 MG ONCE IN THE MORNING
     Route: 050
  4. MIRABEGRON [Suspect]
     Active Substance: MIRABEGRON
     Indication: Hypertonic bladder
  5. ITRACONAZOLE [Suspect]
     Active Substance: ITRACONAZOLE
     Indication: Oral candidiasis
     Route: 065
     Dates: start: 20240809
  6. ITRACONAZOLE [Suspect]
     Active Substance: ITRACONAZOLE
     Route: 065
  7. BOTOX [Concomitant]
     Active Substance: ONABOTULINUMTOXINA
     Indication: Product used for unknown indication
     Route: 065
  8. CRESTOR [Concomitant]
     Active Substance: ROSUVASTATIN CALCIUM
     Indication: Blood cholesterol abnormal
     Route: 065

REACTIONS (4)
  - Oral candidiasis [Unknown]
  - Dysuria [Unknown]
  - Micturition urgency [Unknown]
  - Off label use [Unknown]
